FAERS Safety Report 13885641 (Version 1)
Quarter: 2017Q3

REPORT INFORMATION
  Report Type: Spontaneous
  Country: MX (occurrence: MX)
  Receive Date: 20170821
  Receipt Date: 20170821
  Transmission Date: 20171127
  Serious: Yes (Other)
  Sender: FDA-Public Use
  Company Number: MX-PFIZER INC-2017360451

PATIENT
  Age: 73 Year
  Sex: Male

DRUGS (6)
  1. VITAMIN B12 WITH ZINC [Concomitant]
  2. AMLODIPINE BESILATE [Concomitant]
     Active Substance: AMLODIPINE BESYLATE
     Dosage: UNK
  3. VIAGRA [Suspect]
     Active Substance: SILDENAFIL CITRATE
     Indication: ERECTILE DYSFUNCTION
     Dosage: 100 MG, 1 OR 2 TIMES PER WEEK
     Route: 048
  4. CONCOR [Concomitant]
     Active Substance: BISOPROLOL FUMARATE
  5. METFORMIN [Concomitant]
     Active Substance: METFORMIN HYDROCHLORIDE
  6. NEUROBION /00091901/ [Concomitant]
     Active Substance: HYDROXOCOBALAMIN\PYRIDOXINE HYDROCHLORIDE\THIAMINE HYDROCHLORIDE

REACTIONS (14)
  - Drug effect incomplete [Unknown]
  - Alopecia [Unknown]
  - Cyanopsia [Unknown]
  - Prostatic disorder [Unknown]
  - Amnesia [Unknown]
  - Diabetes mellitus [Unknown]
  - Micturition disorder [Unknown]
  - Ejaculation failure [Unknown]
  - Tooth loss [Unknown]
  - Cardiac disorder [Unknown]
  - Weight decreased [Unknown]
  - Urinary incontinence [Unknown]
  - Erection increased [Unknown]
  - Anal fissure [Unknown]
